FAERS Safety Report 10244924 (Version 1)
Quarter: 2014Q2

REPORT INFORMATION
  Report Type: Spontaneous
  Country: US (occurrence: US)
  Receive Date: 20140618
  Receipt Date: 20140618
  Transmission Date: 20141212
  Serious: No
  Sender: FDA-Public Use
  Company Number: US-GALDERMA-US14000941

PATIENT
  Age: 40 Year
  Sex: Female

DRUGS (3)
  1. MIRVASO (BRIMONIDINE) TOPICAL GEL, 0.33% [Suspect]
     Dosage: 0.33%
     Route: 061
     Dates: start: 201312
  2. CLINIQUE MOISTURIZER [Concomitant]
  3. AQUAPHOR [Concomitant]

REACTIONS (5)
  - Condition aggravated [Unknown]
  - Swelling face [Unknown]
  - Dry skin [Unknown]
  - Erythema [Unknown]
  - Dermatitis contact [Unknown]
